FAERS Safety Report 9539348 (Version 1)
Quarter: 2013Q3

REPORT INFORMATION
  Report Type: Report from Study
  Country: US (occurrence: US)
  Receive Date: 20130920
  Receipt Date: 20130920
  Transmission Date: 20140515
  Serious: Yes (Other)
  Sender: FDA-Public Use
  Company Number: US-PFIZER INC-2013261454

PATIENT
  Age: 14 Year
  Sex: Male
  Weight: 69.7 kg

DRUGS (1)
  1. CRIZOTINIB [Suspect]
     Indication: ANAPLASTIC LARGE CELL LYMPHOMA T- AND NULL-CELL TYPES
     Dosage: 280 MG/M2 , TWICE DAILY (CYCLE 1)
     Dates: start: 20130903

REACTIONS (1)
  - Tumour lysis syndrome [Not Recovered/Not Resolved]
